FAERS Safety Report 8520448-3 (Version None)
Quarter: 2012Q3

REPORT INFORMATION
  Report Type: 
  Country: None (occurrence: None)
  Receive Date: 20120719
  Receipt Date: 20120717
  Transmission Date: 20120928
  Serious: Yes (Death)
  Sender: FDA-Public Use
  Company Number: US-PFIZER INC-2012172643

PATIENT
  Sex: Male

DRUGS (2)
  1. PRISTIQ [Suspect]
     Indication: DEPRESSION
     Dosage: UNK
     Dates: end: 20110101
  2. PRISTIQ [Suspect]
     Dosage: UNK
     Dates: start: 20110101

REACTIONS (1)
  - COMPLETED SUICIDE [None]
